FAERS Safety Report 11182356 (Version 1)
Quarter: 2015Q2

REPORT INFORMATION
  Report Type: Spontaneous
  Country: US (occurrence: US)
  Receive Date: 20150611
  Receipt Date: 20150611
  Transmission Date: 20150821
  Serious: No
  Sender: FDA-Public Use
  Company Number: US-ASTELLAS-2015US016250

PATIENT
  Age: 88 Year
  Sex: Male

DRUGS (1)
  1. XTANDI [Suspect]
     Active Substance: ENZALUTAMIDE
     Indication: PROSTATE CANCER
     Dosage: 2 CAPSULES IN THE MORNING AND 2 CAPSULES IN THE EVENING
     Route: 065

REACTIONS (5)
  - Feeling abnormal [Unknown]
  - Inappropriate schedule of drug administration [Unknown]
  - Musculoskeletal chest pain [Unknown]
  - Pallor [Unknown]
  - Decreased appetite [Unknown]

NARRATIVE: CASE EVENT DATE: 20150510
